FAERS Safety Report 8557774-8 (Version None)
Quarter: 2012Q3

REPORT INFORMATION
  Report Type: 
  Country: None (occurrence: None)
  Receive Date: 20120801
  Receipt Date: 20120724
  Transmission Date: 20120928
  Serious: Yes (Hospitalization, Other)
  Sender: FDA-Public Use
  Company Number: BR-ABBOTT-12P-020-0943220-00

PATIENT
  Age: 53 Year
  Sex: Female

DRUGS (1)
  1. HUMIRA [Suspect]
     Indication: CROHN'S DISEASE

REACTIONS (12)
  - HEPATIC INFECTION [None]
  - LIVER INJURY [None]
  - HYPOTENSION [None]
  - IMMUNOSUPPRESSION [None]
  - PANCREATITIS [None]
  - WEIGHT DECREASED [None]
  - HEART RATE INCREASED [None]
  - LIVER ABSCESS [None]
  - SEPTIC SHOCK [None]
  - PYREXIA [None]
  - ABDOMINAL PAIN [None]
  - ASTHENIA [None]
